FAERS Safety Report 9259683 (Version 3)
Quarter: 2013Q3

REPORT INFORMATION
  Report Type: Spontaneous
  Country: US (occurrence: US)
  Receive Date: 20130429
  Receipt Date: 20130718
  Transmission Date: 20140515
  Serious: Yes (Hospitalization)
  Sender: FDA-Public Use
  Company Number: US-BIOGENIDEC-2013BI037220

PATIENT
  Age: 62 Year
  Sex: Female

DRUGS (1)
  1. TYSABRI [Suspect]
     Indication: MULTIPLE SCLEROSIS
     Route: 042
     Dates: start: 20111026, end: 20130308

REACTIONS (7)
  - Anaemia [Recovered/Resolved]
  - Asthenia [Recovered/Resolved]
  - Dizziness postural [Recovered/Resolved]
  - Drug ineffective [Not Recovered/Not Resolved]
  - Cystitis [Recovered/Resolved]
  - Atrial fibrillation [Recovered/Resolved]
  - Functional gastrointestinal disorder [Not Recovered/Not Resolved]
